FAERS Safety Report 15617446 (Version 2)
Quarter: 2018Q4

REPORT INFORMATION
  Report Type: Spontaneous
  Country: BR (occurrence: BR)
  Receive Date: 20181114
  Receipt Date: 20181204
  Transmission Date: 20190205
  Serious: Yes (Other)
  Sender: FDA-Public Use
  Company Number: PHHY2018BR153689

PATIENT
  Sex: Female

DRUGS (1)
  1. NEOTIAPIM [Suspect]
     Active Substance: QUETIAPINE
     Indication: PRODUCT USED FOR UNKNOWN INDICATION
     Dosage: UNK
     Route: 065

REACTIONS (5)
  - Mucosal haemorrhage [Unknown]
  - Product colour issue [Unknown]
  - Eye haemorrhage [Unknown]
  - Epistaxis [Unknown]
  - Vaginal haemorrhage [Unknown]
